FAERS Safety Report 9739348 (Version 2)
Quarter: 2014Q1

REPORT INFORMATION
  Report Type: Spontaneous
  Country: US (occurrence: US)
  Receive Date: 20131209
  Receipt Date: 20140220
  Transmission Date: 20141002
  Serious: No
  Sender: FDA-Public Use
  Company Number: US-BAYER-2013-150000

PATIENT
  Sex: 0

DRUGS (1)
  1. ANTIHEMOPHILIC FACTOR VIII (RECOMBINANT), SUCROSE FORMULATED [Suspect]
     Indication: IMMUNE TOLERANCE INDUCTION

REACTIONS (1)
  - Drug ineffective for unapproved indication [None]
